FAERS Safety Report 8294317-0 (Version None)
Quarter: 2012Q2

REPORT INFORMATION
  Report Type: 
  Country: None (occurrence: None)
  Receive Date: 20120418
  Receipt Date: 20120410
  Transmission Date: 20120825
  Serious: Yes (Hospitalization, Other)
  Sender: FDA-Public Use
  Company Number: FR-UCBSA-055077

PATIENT
  Age: 85 Year
  Sex: Male

DRUGS (1)
  1. KEPPRA [Suspect]
     Indication: EPILEPSY
     Route: 048
     Dates: start: 20101125

REACTIONS (4)
  - THROMBOCYTOPENIA [None]
  - HALLUCINATION [None]
  - AGGRESSION [None]
  - ABNORMAL BEHAVIOUR [None]
